FAERS Safety Report 7383754-4 (Version None)
Quarter: 2011Q1

REPORT INFORMATION
  Report Type: 
  Country: None (occurrence: None)
  Receive Date: 20110330
  Receipt Date: 20110317
  Transmission Date: 20110831
  Serious: Yes (Other)
  Sender: FDA-Public Use
  Company Number: GB-ELI_LILLY_AND_COMPANY-GB201103005696

PATIENT
  Sex: Male

DRUGS (1)
  1. TADALAFIL [Suspect]
     Dosage: 10 MG, WEEKLY (1/W)
     Dates: start: 20110101

REACTIONS (3)
  - OPTIC ISCHAEMIC NEUROPATHY [None]
  - HEADACHE [None]
  - DIZZINESS [None]
